FAERS Safety Report 9282147 (Version 3)
Quarter: 2013Q2

REPORT INFORMATION
  Report Type: Spontaneous
  Country: BR (occurrence: BR)
  Receive Date: 20130510
  Receipt Date: 20130627
  Transmission Date: 20140414
  Serious: Yes (Other)
  Sender: FDA-Public Use
  Company Number: BR-AMGEN-BRASP2013032908

PATIENT
  Age: 44 Year
  Sex: Female
  Weight: 75 kg

DRUGS (6)
  1. ENBREL [Suspect]
     Indication: RHEUMATOID ARTHRITIS
     Dosage: 50 MG, ONCE WEEKLY
     Route: 065
     Dates: start: 2011
  2. ENBREL [Suspect]
     Dosage: 50 MG, ONCE WEEKLY
     Route: 065
     Dates: start: 20130426, end: 20130426
  3. ENBREL [Suspect]
     Dosage: 50 MG, ONCE WEEKLY
     Route: 058
     Dates: start: 201305
  4. OMEPRAZOL                          /00661201/ [Concomitant]
     Indication: GASTRIC DISORDER
     Dosage: UNK
  5. ACETAMINOPHEN [Concomitant]
     Indication: PAIN
     Dosage: UNSPECIFIED DOSE, AS NEEDED
  6. BI-PROFENID [Concomitant]
     Indication: PAIN
     Dosage: UNK

REACTIONS (11)
  - Dengue fever [Recovered/Resolved]
  - Headache [Unknown]
  - Mass [Unknown]
  - Blood pressure increased [Unknown]
  - Local swelling [Recovered/Resolved]
  - Formication [Unknown]
  - Pain [Not Recovered/Not Resolved]
  - Cough [Not Recovered/Not Resolved]
  - Nervousness [Unknown]
  - Drug ineffective [Not Recovered/Not Resolved]
  - Nasopharyngitis [Not Recovered/Not Resolved]
